FAERS Safety Report 25154346 (Version 1)
Quarter: 2025Q2

REPORT INFORMATION
  Report Type: Spontaneous
  Country: ZA (occurrence: ZA)
  Receive Date: 20250403
  Receipt Date: 20250403
  Transmission Date: 20250717
  Serious: Yes (Other)
  Sender: JOHNSON AND JOHNSON
  Company Number: ZA-JNJFOC-20250386795

PATIENT
  Age: 61 Year
  Sex: Female

DRUGS (8)
  1. INFLIXIMAB [Suspect]
     Active Substance: INFLIXIMAB
     Indication: Ankylosing spondylitis
     Route: 041
     Dates: start: 202308
  2. INFLIXIMAB [Suspect]
     Active Substance: INFLIXIMAB
     Route: 041
     Dates: start: 20231120
  3. INFLIXIMAB [Suspect]
     Active Substance: INFLIXIMAB
     Dosage: DOSE ALSO REPORTED AS 5 MG/KG
     Route: 041
     Dates: start: 20240326, end: 20240826
  4. METHOTREXATE [Concomitant]
     Active Substance: METHOTREXATE
     Dates: start: 202206
  5. CYCLOSPORINE [Concomitant]
     Active Substance: CYCLOSPORINE
     Dates: start: 202408
  6. CYCLOSPORINE [Concomitant]
     Active Substance: CYCLOSPORINE
  7. ETORICOXIB [Concomitant]
     Active Substance: ETORICOXIB
     Dates: start: 202307
  8. ETORICOXIB [Concomitant]
     Active Substance: ETORICOXIB

REACTIONS (5)
  - Paraesthesia [Unknown]
  - Ankylosing spondylitis [Unknown]
  - Rash [Unknown]
  - Treatment failure [Unknown]
  - Off label use [Unknown]

NARRATIVE: CASE EVENT DATE: 20240326
